FAERS Safety Report 6509188-X (Version None)
Quarter: 2009Q4

REPORT INFORMATION
  Report Type: 
  Country: None (occurrence: None)
  Receive Date: 20091221
  Receipt Date: 20091207
  Transmission Date: 20100525
  Serious: Yes (Hospitalization)
  Sender: FDA-Public Use
  Company Number: FR-MYLANLABS-2009S1020938

PATIENT
  Age: 67 Year
  Sex: Male

DRUGS (2)
  1. PHENOBARBITAL [Suspect]
     Indication: EPILEPSY
  2. LAMOTRIGINE [Suspect]
     Indication: EPILEPSY
     Dosage: DOSE RAPIDLY INCREASED UP TO 200MG DAILY OVER 5 WEEKS
     Dates: start: 20040414

REACTIONS (2)
  - DRUG HYPERSENSITIVITY [None]
  - DRUG RASH WITH EOSINOPHILIA AND SYSTEMIC SYMPTOMS [None]
